FAERS Safety Report 9591522 (Version 1)
Quarter: 2013Q4

REPORT INFORMATION
  Report Type: Spontaneous
  Country: US (occurrence: US)
  Receive Date: 20131003
  Receipt Date: 20131003
  Transmission Date: 20140711
  Serious: No
  Sender: FDA-Public Use
  Company Number: US-AMGEN-USASP2012081915

PATIENT
  Age: 58 Year
  Sex: Male

DRUGS (6)
  1. ENBREL [Suspect]
     Indication: RHEUMATOID ARTHRITIS
     Dosage: 50 MG, QWK
     Dates: start: 20100406
  2. HUMIRA [Concomitant]
     Dosage: UNK
  3. PREDNISONE [Concomitant]
     Dosage: 5 MG, AM, 2.5MG THREE TIMES DAILY
  4. PREDNISONE [Concomitant]
     Dosage: 2.5 MG, THREE TIMES DAILY
  5. SULFASALAZINE [Concomitant]
     Dosage: 500 MG, FOUR DAILY
  6. HYDROXYCHLOROQUINE [Concomitant]
     Dosage: 200 MG, 2.5 TABLETS DAILY

REACTIONS (3)
  - Condition aggravated [Not Recovered/Not Resolved]
  - Gait disturbance [Unknown]
  - Injection site pain [Unknown]
